FAERS Safety Report 10263079 (Version 1)
Quarter: 2014Q2

REPORT INFORMATION
  Report Type: Report from Study
  Country: US (occurrence: US)
  Receive Date: 20140626
  Receipt Date: 20140626
  Transmission Date: 20141212
  Serious: Yes (Other)
  Sender: FDA-Public Use
  Company Number: US-MYLANLABS-2014S1000659

PATIENT
  Age: 59 Year
  Sex: Male

DRUGS (7)
  1. CLOZAPINE TABLETS [Suspect]
     Route: 048
  2. ABILIFY [Concomitant]
  3. SERTRALINE [Concomitant]
  4. DOCUSATE [Concomitant]
  5. LORATADINE [Concomitant]
  6. LEVOTHYROXINE [Concomitant]
  7. ATORVASTATIN [Concomitant]

REACTIONS (1)
  - Granulocytopenia [Not Recovered/Not Resolved]
